FAERS Safety Report 13372660 (Version 1)
Quarter: 2017Q1

REPORT INFORMATION
  Report Type: Spontaneous
  Country: US (occurrence: US)
  Receive Date: 20170324
  Receipt Date: 20170324
  Transmission Date: 20170429
  Serious: Yes (Disabling)
  Sender: FDA-Public Use
  Company Number: None

PATIENT
  Age: 53 Year
  Sex: Female

DRUGS (8)
  1. BIOIDENTICAL PROGESTERONE CREME [Suspect]
     Active Substance: PROGESTERONE
     Indication: PRODUCT USED FOR UNKNOWN INDICATION
     Route: 061
     Dates: start: 20120912, end: 20140115
  2. VITAMIN B COMPLEX [Concomitant]
     Active Substance: CYANOCOBALAMIN\DEXPANTHENOL\NIACINAMIDE\PYRIDOXINE HYDROCHLORIDE\RIBOFLAVIN 5^-PHOSPHATE SODIUM\THIAMINE HYDROCHLORIDE\VITAMIN B COMPLEX
  3. CPAP [Concomitant]
     Active Substance: DEVICE
  4. PROBIOTIC [Concomitant]
     Active Substance: PROBIOTICS NOS
  5. MULTI VITAMIN [Concomitant]
     Active Substance: VITAMINS
  6. PAROXETINE. [Concomitant]
     Active Substance: PAROXETINE
  7. VITAMIN D [Concomitant]
     Active Substance: CHOLECALCIFEROL
  8. LETROZOLE. [Concomitant]
     Active Substance: LETROZOLE

REACTIONS (2)
  - Progesterone receptor assay positive [None]
  - Oestrogen receptor positive breast cancer [None]

NARRATIVE: CASE EVENT DATE: 20120924
